FAERS Safety Report 25173924 (Version 2)
Quarter: 2025Q4

REPORT INFORMATION
  Report Type: Spontaneous
  Country: US (occurrence: US)
  Receive Date: 20250408
  Receipt Date: 20251108
  Transmission Date: 20260119
  Serious: No
  Sender: SANOFI AVENTIS
  Company Number: US-SA-2025SA098963

PATIENT
  Sex: Female
  Weight: 73.02 kg

DRUGS (10)
  1. DUPIXENT [Suspect]
     Active Substance: DUPILUMAB
     Indication: Asthma
     Dosage: 300 MG, QOW
     Route: 058
  2. SYNTHROID [Concomitant]
     Active Substance: LEVOTHYROXINE SODIUM
     Dosage: UNK
  3. SINGULAIR [Concomitant]
     Active Substance: MONTELUKAST SODIUM
     Dosage: UNK
  4. LAMICTAL [Concomitant]
     Active Substance: LAMOTRIGINE
     Dosage: UNK
  5. LEVETIRACETAM [Concomitant]
     Active Substance: LEVETIRACETAM
     Dosage: UNK
  6. NITRO TIME [Concomitant]
     Dosage: UNK
  7. ALBUTEROL SULFATE [Concomitant]
     Active Substance: ALBUTEROL SULFATE
     Dosage: UNK
  8. NEXLIZET [Concomitant]
     Active Substance: BEMPEDOIC ACID\EZETIMIBE
     Dosage: UNK
  9. ISOSORBIDE DINITRATE [Concomitant]
     Active Substance: ISOSORBIDE DINITRATE
     Dosage: UNK
  10. ESTRADIOL [Concomitant]
     Active Substance: ESTRADIOL
     Dosage: UNK UNK, QW

REACTIONS (5)
  - Skin reaction [Recovered/Resolved]
  - Injection site urticaria [Recovered/Resolved]
  - Pruritus [Recovered/Resolved]
  - Accidental exposure to product [Unknown]
  - Exposure via skin contact [Unknown]
